FAERS Safety Report 9219248 (Version 1)
Quarter: 2013Q2

REPORT INFORMATION
  Report Type: Spontaneous
  Country: US (occurrence: None)
  Receive Date: 20130404
  Receipt Date: 20130404
  Transmission Date: 20140414
  Serious: Yes (Other)
  Sender: FDA-Public Use
  Company Number: SYM-2013-02326

PATIENT
  Sex: 0

DRUGS (9)
  1. FLUOROURACIL (FLUOROURACIL)(FLUOROURACIL) [Suspect]
     Indication: ADENOCARCINOMA PANCREAS
  2. FLUOROURACIL (FLUOROURACIL)(FLUOROURACIL) [Suspect]
  3. OXALIPLATIN [Suspect]
     Indication: ADENOCARCINOMA PANCREAS
  4. IRINOTECAN [Suspect]
     Indication: ADENOCARCINOMA PANCREAS
  5. LEUCOVORIN [Suspect]
     Indication: ADENOCARCINOMA PANCREAS
  6. PEGFILGRASTIN (PEGFILGRASTIM)(PEGFILGRASTIM) [Concomitant]
  7. PALONOSETRON (PALONOSETRON)(PALONOSETRON) [Concomitant]
  8. APREPITANT (APREPITANT)(APREPITANT) [Concomitant]
  9. DEXAMETHASONE (DEXAMETHASONE)(DEXAMETHASONE) [Concomitant]

REACTIONS (1)
  - Thrombocytopenia [None]
